FAERS Safety Report 18711704 (Version 1)
Quarter: 2021Q1

REPORT INFORMATION
  Report Type: Spontaneous
  Country: NL (occurrence: NL)
  Receive Date: 20210107
  Receipt Date: 20210107
  Transmission Date: 20210419
  Serious: Yes (Hospitalization)
  Sender: FDA-Public Use
  Company Number: NL-TEVA-2021-NL-1866073

PATIENT
  Age: 69 Year
  Sex: Male
  Weight: 80 kg

DRUGS (4)
  1. ALENDRONINEZUUR TABLET 70MG / BRAND NAME NOT SPECIFIED [Concomitant]
     Active Substance: ALENDRONIC ACID
     Dosage: 70 MG , THERAPY START DATE AND END DATE : ASKU
  2. COLECALCIFEROL CAPSULE 5600IE / BRAND NAME NOT SPECIFIED [Concomitant]
     Active Substance: CHOLECALCIFEROL
     Dosage: 5600 UNITS, THERAPY START DATE AND END DATE : ASKU
  3. PREDNISOLON TABLET  5MG / BRAND NAME NOT SPECIFIED [Concomitant]
     Active Substance: PREDNISOLONE
     Dosage: 5 MG , THERAPY START DATE AND END DATE : ASKU
  4. DICLOFENAC?NATRIUM TABLET MSR 50MG / BRAND NAME NOT SPECIFIED [Suspect]
     Active Substance: DICLOFENAC SODIUM
     Indication: POLYMYALGIA RHEUMATICA
     Dosage: IF NECESSARY 1 ? 3 DD 1, UNIT DOSE : 50 MG
     Route: 065
     Dates: start: 202007, end: 20201008

REACTIONS (4)
  - Anaphylactic shock [Recovered/Resolved]
  - Urticaria [Recovered/Resolved]
  - Pruritus [Recovered/Resolved]
  - Face oedema [Recovered/Resolved]

NARRATIVE: CASE EVENT DATE: 20200402
